FAERS Safety Report 4910814-7 (Version None)
Quarter: 2006Q1

REPORT INFORMATION
  Report Type: 
  Country: None (occurrence: None)
  Receive Date: 20060214
  Receipt Date: 20060130
  Transmission Date: 20060701
  Serious: Yes (Other)
  Sender: FDA-Public Use
  Company Number: US-GLAXOSMITHKLINE-A0591751A

PATIENT
  Age: 40 Year
  Sex: Female
  Weight: 84.1 kg

DRUGS (1)
  1. REQUIP [Suspect]
     Indication: RESTLESS LEGS SYNDROME
     Route: 048
     Dates: start: 20060101, end: 20060127

REACTIONS (2)
  - ASTHMA [None]
  - SEXUAL DYSFUNCTION [None]
